FAERS Safety Report 5027931-6 (Version None)
Quarter: 2006Q2

REPORT INFORMATION
  Report Type: 
  Country: None (occurrence: None)
  Receive Date: 20060616
  Receipt Date: 20060606
  Transmission Date: 20061013
  Serious: Yes (Other)
  Sender: FDA-Public Use
  Company Number: 2006AC01078

PATIENT
  Age: 14 Year
  Sex: Female
  Weight: 62 kg

DRUGS (1)
  1. EMLA [Suspect]
     Indication: LASER THERAPY
     Route: 061
     Dates: start: 20060328, end: 20060328

REACTIONS (2)
  - CYANOSIS [None]
  - METHAEMOGLOBINAEMIA [None]
